FAERS Safety Report 6651664-3 (Version None)
Quarter: 2010Q1

REPORT INFORMATION
  Report Type: 
  Country: None (occurrence: None)
  Receive Date: 20100322
  Receipt Date: 20100311
  Transmission Date: 20100710
  Serious: Yes (Other)
  Sender: FDA-Public Use
  Company Number: 2010JP001588

PATIENT
  Age: 64 Year
  Sex: Male

DRUGS (3)
  1. PROGRAF [Suspect]
     Indication: CORD BLOOD TRANSPLANT THERAPY
  2. METHYLPREDNISOLONE [Concomitant]
  3. METHOTREXATE [Concomitant]

REACTIONS (2)
  - PNEUMATOSIS INTESTINALIS [None]
  - SEPSIS [None]
